FAERS Safety Report 12737680 (Version 2)
Quarter: 2018Q2

REPORT INFORMATION
  Report Type: Spontaneous
  Country: US (occurrence: US)
  Receive Date: 20160912
  Receipt Date: 20180515
  Transmission Date: 20180711
  Serious: No
  Sender: FDA-Public Use
  Company Number: US-SA-2016SA116613

PATIENT
  Age: 65 Year
  Sex: Female

DRUGS (3)
  1. TOUJEO [Suspect]
     Active Substance: INSULIN GLARGINE
     Indication: TYPE 2 DIABETES MELLITUS
     Dosage: DOSE:70 UNIT(S)
     Route: 065
  2. TOUJEO [Suspect]
     Active Substance: INSULIN GLARGINE
     Indication: TYPE 2 DIABETES MELLITUS
     Dosage: DOSE: 43 UNITS EVERY NIGHT,INCREASING HER DOSE BY 3 UNITS EVERY 3 DAYS DOSE:43 UNIT(S)
     Route: 065
     Dates: start: 201604
  3. SOLOSTAR [Concomitant]
     Active Substance: DEVICE
     Dates: start: 201604

REACTIONS (2)
  - Product storage error [Unknown]
  - Blood glucose increased [Unknown]
